FAERS Safety Report 4610288-X (Version None)
Quarter: 2005Q1

REPORT INFORMATION
  Report Type: 
  Country: None (occurrence: None)
  Receive Date: 20050314
  Receipt Date: 20050228
  Transmission Date: 20050727
  Serious: Yes (Other)
  Sender: FDA-Public Use
  Company Number: 2005042443

PATIENT
  Sex: Female

DRUGS (8)
  1. BEXTRA [Suspect]
     Indication: BURSITIS
     Dosage: 20 MG (20 MG, 1 IN 1 D), ORAL
     Route: 048
     Dates: start: 20030601, end: 20041101
  2. BEXTRA [Suspect]
     Indication: ROTATOR CUFF SYNDROME
     Dosage: 20 MG (20 MG, 1 IN 1 D), ORAL
     Route: 048
     Dates: start: 20030601, end: 20041101
  3. CELEBREX [Suspect]
     Indication: BURSITIS
     Dosage: 200 MG (200 MG, 1 IN 1 D), ORAL
     Route: 048
     Dates: start: 20050101
  4. NABUMETONE [Suspect]
     Indication: BURSITIS
     Dosage: ORAL
     Route: 048
     Dates: start: 20040101, end: 20041201
  5. CODEINE PHOSPHATE AND ACETAMINOPHEN [Concomitant]
  6. RANITIDINE HYDROCHLORIDE [Concomitant]
  7. ULTRACET [Concomitant]
  8. GLUCOSAMINE W/CHOINDROITIN SULFATES (ASCORBIC ACID, CHONDROITIN SULFAT [Concomitant]

REACTIONS (5)
  - BURSITIS [None]
  - DRUG INEFFECTIVE [None]
  - HEADACHE [None]
  - INADEQUATE ANALGESIA [None]
  - STOMACH DISCOMFORT [None]
